FAERS Safety Report 5705261-4 (Version None)
Quarter: 2008Q2

REPORT INFORMATION
  Report Type: 
  Country: None (occurrence: None)
  Receive Date: 20080410
  Receipt Date: 20080401
  Transmission Date: 20081010
  Serious: Yes (Hospitalization)
  Sender: FDA-Public Use
  Company Number: 2008AL001986

PATIENT
  Sex: 0

DRUGS (2)
  1. SPIRONOLACTONE [Suspect]
     Dosage: 100 MG; BID
  2. FUROSEMIDE [Concomitant]

REACTIONS (3)
  - ASCITES [None]
  - GYNAECOMASTIA [None]
  - PAIN [None]
